FAERS Safety Report 24545320 (Version 2)
Quarter: 2025Q1

REPORT INFORMATION
  Report Type: Spontaneous
  Country: CA (occurrence: CA)
  Receive Date: 20241024
  Receipt Date: 20250116
  Transmission Date: 20250408
  Serious: Yes (Other)
  Sender: PFIZER
  Company Number: CA-PFIZER INC-PV202400121263

PATIENT
  Age: 63 Year
  Sex: Male

DRUGS (2)
  1. MEKTOVI [Suspect]
     Active Substance: BINIMETINIB
     Indication: Malignant melanoma
     Dosage: 45 MG, 2X/DAY
     Dates: start: 20240919
  2. BRAFTOVI [Suspect]
     Active Substance: ENCORAFENIB
     Indication: Malignant melanoma
     Dosage: 450 MG, DAILY

REACTIONS (4)
  - Seizure [Unknown]
  - Gait disturbance [Recovering/Resolving]
  - COVID-19 [Unknown]
  - Neoplasm progression [Unknown]
